FAERS Safety Report 7559547-1 (Version None)
Quarter: 2011Q2

REPORT INFORMATION
  Report Type: 
  Country: None (occurrence: None)
  Receive Date: 20110617
  Receipt Date: 20110617
  Transmission Date: 20111010
  Serious: No
  Sender: FDA-Public Use
  Company Number: None

PATIENT
  Sex: Female
  Weight: 636.4 kg

DRUGS (2)
  1. XELODA [Suspect]
     Indication: LYMPHOMA
     Dosage: 1300MG TWICE DAILY, MON BY MOUTH
     Route: 048
     Dates: start: 20110501, end: 20110601
  2. XELODA [Suspect]
     Indication: RECTAL CANCER
     Dosage: 1300MG TWICE DAILY, MON BY MOUTH
     Route: 048
     Dates: start: 20110501, end: 20110601

REACTIONS (1)
  - RASH [None]
